FAERS Safety Report 5115478-8 (Version None)
Quarter: 2006Q3

REPORT INFORMATION
  Report Type: 
  Country: None (occurrence: None)
  Receive Date: 20060927
  Receipt Date: 20060915
  Transmission Date: 20061208
  Serious: Yes (Hospitalization)
  Sender: FDA-Public Use
  Company Number: SE-JNJFOC-20060903916

PATIENT
  Age: 78 Year
  Sex: Female

DRUGS (8)
  1. REMICADE [Suspect]
     Route: 042
  2. REMICADE [Suspect]
     Indication: RHEUMATOID ARTHRITIS
     Route: 042
  3. ALVEDON [Concomitant]
     Route: 065
  4. MOBIC [Concomitant]
     Route: 065
  5. LANSOPRAZOLE [Concomitant]
     Route: 065
  6. PLENDIL [Concomitant]
     Route: 065
  7. LEVAXIN [Concomitant]
  8. KALCIPOS D [Concomitant]

REACTIONS (2)
  - MALIGNANT RESPIRATORY TRACT NEOPLASM [None]
  - PNEUMONIA [None]
